FAERS Safety Report 26098061 (Version 1)
Quarter: 2025Q4

REPORT INFORMATION
  Report Type: Spontaneous
  Country: CN (occurrence: CN)
  Receive Date: 20251127
  Receipt Date: 20251127
  Transmission Date: 20260117
  Serious: Yes (Other)
  Sender: CSL BEHRING
  Company Number: CN-BEH-2025226450

PATIENT
  Age: 72 Year
  Sex: Male

DRUGS (3)
  1. VELPHORO [Suspect]
     Active Substance: SUCROFERRIC OXYHYDROXIDE
     Indication: Hyperphosphataemia
     Dosage: 500 MG, TID (3 TABLETS, TID)
     Route: 048
     Dates: start: 20250201, end: 202511
  2. INVESTIGATIONAL PRODUCT [Suspect]
     Active Substance: INVESTIGATIONAL PRODUCT
     Indication: Anaemia
  3. PARICALCITOL [Concomitant]
     Active Substance: PARICALCITOL

REACTIONS (1)
  - Serum ferritin increased [Unknown]

NARRATIVE: CASE EVENT DATE: 20250801
